FAERS Safety Report 25075273 (Version 2)
Quarter: 2025Q3

REPORT INFORMATION
  Report Type: Spontaneous
  Country: CA (occurrence: CA)
  Receive Date: 20250313
  Receipt Date: 20250718
  Transmission Date: 20251020
  Serious: Yes (Death, Hospitalization, Other)
  Sender: GILEAD
  Company Number: CA-GILEAD-2025-0706079

PATIENT
  Age: 19 Year
  Sex: Male
  Weight: 79 kg

DRUGS (1)
  1. YESCARTA [Suspect]
     Active Substance: AXICABTAGENE CILOLEUCEL
     Indication: Diffuse large B-cell lymphoma
     Route: 042
     Dates: start: 20250224

REACTIONS (4)
  - Immune effector cell-associated neurotoxicity syndrome [Fatal]
  - Brain oedema [Fatal]
  - Intracranial pressure increased [Fatal]
  - Neurotoxicity [Fatal]

NARRATIVE: CASE EVENT DATE: 20250228
